FAERS Safety Report 11733716 (Version 1)
Quarter: 2015Q4

REPORT INFORMATION
  Report Type: Spontaneous
  Country: US (occurrence: US)
  Receive Date: 20151110
  Receipt Date: 20151110
  Transmission Date: 20160304
  Serious: No
  Sender: FDA-Public Use
  Company Number: US-ELI_LILLY_AND_COMPANY-US201205007964

PATIENT
  Age: 86 Year
  Sex: Female

DRUGS (17)
  1. FORTEO [Suspect]
     Active Substance: TERIPARATIDE
     Indication: OSTEOPOROSIS
     Dosage: UNK, QD
     Dates: start: 201108
  2. DIOVAN [Concomitant]
     Active Substance: VALSARTAN
     Indication: BLOOD PRESSURE ABNORMAL
  3. ARTIFICIAL TEARS [Concomitant]
     Active Substance: GLYCERIN\HYPROMELLOSES\POLYETHYLENE GLYCOL 400
     Indication: DRY EYE
  4. NEXIUM [Concomitant]
     Active Substance: ESOMEPRAZOLE MAGNESIUM
  5. FOLIC ACID. [Concomitant]
     Active Substance: FOLIC ACID
  6. AMBIEN [Concomitant]
     Active Substance: ZOLPIDEM TARTRATE
     Indication: INSOMNIA
     Dosage: 6.2 MG, PRN
  7. NITROGEN, LIQUID [Concomitant]
  8. METHOTREXATE [Concomitant]
     Active Substance: METHOTREXATE
     Dosage: 2.5 MG, WEEKLY (1/W)
  9. FISH OIL [Concomitant]
     Active Substance: FISH OIL
  10. TYLENOL [Concomitant]
     Active Substance: ACETAMINOPHEN
     Indication: PAIN
     Dosage: UNK, PRN
  11. METAMUCIL [Concomitant]
     Active Substance: PLANTAGO SEED
  12. TRAMADOL. [Concomitant]
     Active Substance: TRAMADOL
     Indication: BONE PAIN
  13. LEVAQUIN [Concomitant]
     Active Substance: LEVOFLOXACIN
     Indication: CYSTITIS
  14. WARFARIN [Concomitant]
     Active Substance: WARFARIN
     Indication: PULMONARY VASCULAR DISORDER
  15. PREDNISONE. [Concomitant]
     Active Substance: PREDNISONE
  16. METOPROLOL [Concomitant]
     Active Substance: METOPROLOL
     Indication: HEART RATE IRREGULAR
     Dosage: 100 MG, UNK
  17. POTASSIUM [Concomitant]
     Active Substance: POTASSIUM

REACTIONS (3)
  - Inflammation [Unknown]
  - Skin lesion excision [Unknown]
  - Erythema [Unknown]
